FAERS Safety Report 8363164-3 (Version None)
Quarter: 2012Q2

REPORT INFORMATION
  Report Type: 
  Country: None (occurrence: None)
  Receive Date: 20120516
  Receipt Date: 20111101
  Transmission Date: 20120825
  Serious: No
  Sender: FDA-Public Use
  Company Number: US-ALEXION-A201101655

PATIENT
  Sex: Female
  Weight: 35.3 kg

DRUGS (18)
  1. OXCARBAZEPINE [Concomitant]
     Dosage: 450 MG, BID
     Route: 048
  2. OXCARBAZEPINE [Concomitant]
     Dosage: 300 UNK, UNK
  3. FUROSEMIDE [Concomitant]
     Dosage: 20 MG, TID
     Route: 048
  4. ENALAPRIL MALEATE [Concomitant]
     Dosage: 5 MG, BID
  5. CELLCEPT [Suspect]
     Dosage: 500 MG, BID
     Route: 048
  6. SOLIRIS [Suspect]
     Indication: HAEMOLYTIC URAEMIC SYNDROME
     Dosage: UNK, WEEKLY
     Route: 042
     Dates: start: 20111010
  7. NIFEDIPINE [Concomitant]
     Indication: HYPERTENSION
     Dosage: 10 MG, Q4 HOURS
  8. PROCARDIA [Concomitant]
     Dosage: 60 MG, BID
  9. RENVELA [Concomitant]
     Indication: RENAL OSTEODYSTROPHY
     Dosage: 6 TABLETS QD
     Dates: end: 20120105
  10. ZEMPLAR [Concomitant]
     Indication: RENAL OSTEODYSTROPHY
     Dosage: 1 MCG, TID
     Route: 048
  11. PROCARDIA [Concomitant]
     Dosage: 90 MG, QID
     Route: 048
  12. CATAPRES [Concomitant]
     Dosage: 0.2 MG, QW
     Route: 062
  13. EPOGEN [Concomitant]
     Indication: ANAEMIA
     Dosage: 10000 UNITS, 3 TIMES WEEKLY
     Route: 058
  14. SOLIRIS [Suspect]
     Dosage: 900 MG, Q2W
     Route: 042
  15. FERROUS SULFATE TAB [Concomitant]
     Dosage: 325 MG, TID
     Dates: end: 20120105
  16. CIPROFLOXACIN [Concomitant]
     Indication: PROPHYLAXIS
     Dosage: 250 MG, QD
  17. OMEPRAZOLE [Concomitant]
     Dosage: 20 MG, QD
     Route: 048
  18. MYFORTIC [Suspect]
     Dosage: 360 MG, BID
     Route: 048

REACTIONS (8)
  - MUSCULOSKELETAL DISCOMFORT [None]
  - BLOOD CREATININE INCREASED [None]
  - DEHYDRATION [None]
  - DECREASED APPETITE [None]
  - PLATELET COUNT DECREASED [None]
  - VOMITING [None]
  - NAUSEA [None]
  - DYSPEPSIA [None]
